FAERS Safety Report 14314581 (Version 2)
Quarter: 2018Q1

REPORT INFORMATION
  Report Type: Spontaneous
  Country: TN (occurrence: TN)
  Receive Date: 20171221
  Receipt Date: 20180208
  Transmission Date: 20180509
  Serious: Yes (Hospitalization, Other)
  Sender: FDA-Public Use
  Company Number: TN-IMPAX LABORATORIES, INC-2017-IPXL-03659

PATIENT
  Age: 33 Year
  Sex: Male
  Weight: 52 kg

DRUGS (3)
  1. INSULIN [Suspect]
     Active Substance: INSULIN NOS
     Dosage: 0.88 IU/KG, DAILY; SEMISYNTHETIC H INSULIN (16 AND 12 IU); FAST-ACTING H INSULIN (6, 6, 6 IU)
     Route: 058
  2. METFORMIN HYDROCHLORIDE ER [Suspect]
     Active Substance: METFORMIN HYDROCHLORIDE
     Indication: DIABETES MELLITUS
     Dosage: UNK
     Route: 065
  3. INSULIN [Suspect]
     Active Substance: INSULIN NOS
     Indication: DIABETES MELLITUS
     Dosage: FAST ACTING INSULIN 60 IU, UNK
     Route: 065

REACTIONS (8)
  - Hepatic steatosis [Unknown]
  - Oedema [Recovered/Resolved]
  - Scrotal oedema [Recovered/Resolved]
  - Diabetic ketosis [Recovering/Resolving]
  - Hypoproteinaemia [Recovered/Resolved]
  - Generalised oedema [Recovered/Resolved]
  - Pericardial effusion [Unknown]
  - Hyponatraemia [Recovered/Resolved]
